FAERS Safety Report 6978969-0 (Version None)
Quarter: 2010Q3

REPORT INFORMATION
  Report Type: 
  Country: None (occurrence: None)
  Receive Date: 20100913
  Receipt Date: 20100902
  Transmission Date: 20110219
  Serious: Yes (Other)
  Sender: FDA-Public Use
  Company Number: US-JNJFOC-20100901715

PATIENT
  Age: 60 Year
  Sex: Female

DRUGS (3)
  1. TYLENOL (CAPLET) [Suspect]
     Route: 048
  2. TYLENOL (CAPLET) [Suspect]
     Indication: ARTHRALGIA
     Dosage: REPORTED AS 3900 TO 5200 MG DAILY FOR SEVERAL YEARS
     Route: 048
  3. PRESCRIPTION MEDICATION [Concomitant]
     Indication: PRODUCT USED FOR UNKNOWN INDICATION
     Route: 065

REACTIONS (3)
  - HEPATIC CIRRHOSIS [None]
  - INTENTIONAL DRUG MISUSE [None]
  - OVERDOSE [None]
